FAERS Safety Report 6990331-3 (Version None)
Quarter: 2010Q3

REPORT INFORMATION
  Report Type: 
  Country: None (occurrence: None)
  Receive Date: 20100916
  Receipt Date: 20100614
  Transmission Date: 20110219
  Serious: Yes (Hospitalization)
  Sender: FDA-Public Use
  Company Number: DE-PFIZER INC-2010055124

PATIENT
  Sex: Male
  Weight: 130 kg

DRUGS (2)
  1. LYRICA [Suspect]
     Indication: ANXIETY
     Dosage: 75 MG, DAILY
     Route: 048
     Dates: start: 20100224, end: 20100312
  2. LYRICA [Suspect]
     Indication: AGORAPHOBIA

REACTIONS (3)
  - AGGRESSION [None]
  - MYOSCLEROSIS [None]
  - TENSION [None]
